FAERS Safety Report 12527378 (Version 1)
Quarter: 2016Q3

REPORT INFORMATION
  Report Type: Spontaneous
  Country: FR (occurrence: FR)
  Receive Date: 20160705
  Receipt Date: 20160705
  Transmission Date: 20161109
  Serious: Yes (Hospitalization)
  Sender: FDA-Public Use
  Company Number: FR-PFIZER INC-2016320242

PATIENT
  Age: 92 Year
  Sex: Female

DRUGS (1)
  1. CORDARONE [Suspect]
     Active Substance: AMIODARONE HYDROCHLORIDE
     Indication: ATRIAL FIBRILLATION
     Dosage: 1 DF, DAILY
     Route: 048
     Dates: end: 201504

REACTIONS (5)
  - Acute kidney injury [Unknown]
  - Pulmonary fibrosis [Unknown]
  - Pulmonary oedema [Unknown]
  - Cardiac failure congestive [Unknown]
  - Hyponatraemia [Unknown]

NARRATIVE: CASE EVENT DATE: 201504
